FAERS Safety Report 8306567-5 (Version None)
Quarter: 2012Q2

REPORT INFORMATION
  Report Type: 
  Country: None (occurrence: None)
  Receive Date: 20120420
  Receipt Date: 20120420
  Transmission Date: 20120825
  Serious: Yes (Other)
  Sender: FDA-Public Use
  Company Number: None

PATIENT
  Sex: Female

DRUGS (1)
  1. XOLAIR [Suspect]
     Dosage: 150MG Q 4 WEEKS SQ
     Route: 058
     Dates: start: 20120316, end: 20120316

REACTIONS (4)
  - GLOSSITIS [None]
  - BLOOD GLUCOSE INCREASED [None]
  - THROAT IRRITATION [None]
  - BLOOD PRESSURE INCREASED [None]
